FAERS Safety Report 4448810-9 (Version None)
Quarter: 2004Q3

REPORT INFORMATION
  Report Type: 
  Country: None (occurrence: None)
  Receive Date: 20040913
  Receipt Date: 20040901
  Transmission Date: 20050211
  Serious: Yes (Disabling)
  Sender: FDA-Public Use
  Company Number: 2004UW18430

PATIENT
  Age: 20 Year
  Sex: Female
  Weight: 49.8957 kg

DRUGS (6)
  1. SEROQUEL [Suspect]
     Indication: MOOD ALTERED
  2. METHYLPHENIDATE HCL [Concomitant]
  3. CLONAZEPAM [Concomitant]
  4. AMBIEN [Concomitant]
  5. DEPO-PROVERA [Concomitant]
  6. FENTANYL [Concomitant]

REACTIONS (5)
  - ABASIA [None]
  - DYSARTHRIA [None]
  - INSOMNIA [None]
  - INTENTIONAL OVERDOSE [None]
  - SEROTONIN SYNDROME [None]
